FAERS Safety Report 21997733 (Version 1)
Quarter: 2023Q1

REPORT INFORMATION
  Report Type: Spontaneous
  Country: JP (occurrence: JP)
  Receive Date: 20230216
  Receipt Date: 20230216
  Transmission Date: 20230418
  Serious: Yes (Hospitalization)
  Sender: FDA-Public Use
  Company Number: JP-CHUGAI-2023004220

PATIENT
  Age: 71 Year
  Sex: Female
  Weight: 62 kg

DRUGS (10)
  1. AVASTIN [Suspect]
     Active Substance: BEVACIZUMAB
     Indication: Ovarian cancer
     Dosage: SINGLE
     Route: 041
     Dates: start: 20200121, end: 20200121
  2. AVASTIN [Suspect]
     Active Substance: BEVACIZUMAB
     Indication: Malignant peritoneal neoplasm
  3. CARBOPLATIN [Concomitant]
     Active Substance: CARBOPLATIN
     Indication: Ovarian cancer
     Dosage: UNK, SINGLE
     Route: 041
     Dates: start: 20200121, end: 20200121
  4. CARBOPLATIN [Concomitant]
     Active Substance: CARBOPLATIN
     Indication: Malignant peritoneal neoplasm
  5. PACLITAXEL [Concomitant]
     Active Substance: PACLITAXEL
     Indication: Ovarian cancer
     Dosage: UNK
     Route: 041
     Dates: start: 20200121, end: 20200121
  6. PACLITAXEL [Concomitant]
     Active Substance: PACLITAXEL
     Indication: Malignant peritoneal neoplasm
  7. ALOXI [Concomitant]
     Active Substance: PALONOSETRON HYDROCHLORIDE
     Dosage: UNK
     Route: 042
     Dates: start: 20200121, end: 20200121
  8. FAMOTIDINE [Concomitant]
     Active Substance: FAMOTIDINE
     Dosage: UNK
     Route: 042
     Dates: start: 20200121, end: 20200121
  9. DEXAMETHASONE SODIUM PHOSPHATE [Concomitant]
     Active Substance: DEXAMETHASONE SODIUM PHOSPHATE
     Dosage: UNK
     Route: 042
     Dates: start: 20200121, end: 20200121
  10. POLARAMINE [Concomitant]
     Active Substance: DEXCHLORPHENIRAMINE MALEATE
     Dosage: UNK
     Route: 042
     Dates: start: 20200121, end: 20200121

REACTIONS (2)
  - Peritonitis [Recovering/Resolving]
  - Duodenal perforation [Recovering/Resolving]

NARRATIVE: CASE EVENT DATE: 20200126
